FAERS Safety Report 8610559-6 (Version None)
Quarter: 2012Q3

REPORT INFORMATION
  Report Type: 
  Country: None (occurrence: None)
  Receive Date: 20120822
  Receipt Date: 20120814
  Transmission Date: 20120928
  Serious: Yes (Hospitalization)
  Sender: FDA-Public Use
  Company Number: FR-JNJFOC-20120809112

PATIENT
  Sex: Male

DRUGS (1)
  1. ZYTIGA [Suspect]
     Indication: PRODUCT USED FOR UNKNOWN INDICATION
     Dosage: INTRODUCED 5 MONTHS BEFORE
     Route: 048
     Dates: start: 20120301

REACTIONS (4)
  - ARTHRALGIA [None]
  - CARDIAC FAILURE [None]
  - MYALGIA [None]
  - PNEUMONIA [None]
